FAERS Safety Report 19705866 (Version 2)
Quarter: 2021Q3

REPORT INFORMATION
  Report Type: Spontaneous
  Country: US (occurrence: US)
  Receive Date: 20210817
  Receipt Date: 20210909
  Transmission Date: 20211014
  Serious: No
  Sender: FDA-Public Use
  Company Number: US-ASTRAZENECA-2021A634850

PATIENT
  Age: 30714 Day
  Sex: Female

DRUGS (2)
  1. BUDESONIDE AND FORMOTEROL [Suspect]
     Active Substance: BUDESONIDE\FORMOTEROL
     Indication: BRONCHIECTASIS
     Dosage: 160/4.5 UG, UNKNOWN FREQUENCY UNKNOWN
     Route: 055
     Dates: start: 20210720
  2. FLUTICASONE PROPIONATE. [Concomitant]
     Active Substance: FLUTICASONE PROPIONATE
     Dosage: UNKNOWN
     Route: 065

REACTIONS (3)
  - Incorrect dose administered [Unknown]
  - Product taste abnormal [Unknown]
  - Product odour abnormal [Unknown]

NARRATIVE: CASE EVENT DATE: 20210720
